FAERS Safety Report 10211631 (Version 1)
Quarter: 2014Q2

REPORT INFORMATION
  Report Type: Spontaneous
  Country: AE (occurrence: AE)
  Receive Date: 20140602
  Receipt Date: 20140602
  Transmission Date: 20141212
  Serious: Yes (Life-Threatening, Other)
  Sender: FDA-Public Use
  Company Number: AE-B.I. PHARMACEUTICALS,INC./RIDGEFIELD-2014-BI-24359GD

PATIENT
  Age: 34 Year
  Sex: Female

DRUGS (19)
  1. PRAMIPEXOLE [Suspect]
     Indication: NEUROLEPTIC MALIGNANT SYNDROME
     Route: 065
  2. HALOPERIDOL [Suspect]
     Indication: PSYCHOTIC DISORDER
     Dosage: HIGH DOSES
     Route: 065
  3. HALOPERIDOL [Suspect]
     Indication: AGITATION
  4. HALOPERIDOL [Suspect]
     Indication: RESTLESSNESS
  5. HALOPERIDOL [Suspect]
     Indication: HALLUCINATION
  6. OLANZAPINE [Suspect]
     Indication: PSYCHOTIC DISORDER
     Dosage: HEAVY DOSES
     Route: 065
  7. OLANZAPINE [Suspect]
     Indication: AGITATION
  8. OLANZAPINE [Suspect]
     Indication: RESTLESSNESS
  9. OLANZAPINE [Suspect]
     Indication: HALLUCINATION
  10. RISPERIDONE [Suspect]
     Indication: PSYCHOTIC DISORDER
     Route: 065
  11. RISPERIDONE [Suspect]
     Indication: AGITATION
  12. RISPERIDONE [Suspect]
     Indication: RESTLESSNESS
  13. RISPERIDONE [Suspect]
     Indication: HALLUCINATION
  14. PROCYCLIDINE [Suspect]
     Indication: NEUROLEPTIC MALIGNANT SYNDROME
     Route: 065
  15. PROCYCLIDINE [Suspect]
     Indication: PSYCHOTIC DISORDER
  16. PROCYCLIDINE [Suspect]
     Indication: RESTLESSNESS
  17. PROCYCLIDINE [Suspect]
     Indication: AGITATION
  18. PROCYCLIDINE [Suspect]
     Indication: HALLUCINATION
  19. SINEMET [Suspect]
     Indication: NEUROLEPTIC MALIGNANT SYNDROME
     Route: 065

REACTIONS (4)
  - Neuroleptic malignant syndrome [Recovered/Resolved]
  - Drug ineffective [Recovered/Resolved]
  - Respiratory failure [Recovered/Resolved]
  - Bruxism [Unknown]
